FAERS Safety Report 8575726 (Version 6)
Quarter: 2013Q1

REPORT INFORMATION
  Report Type: Report from Study
  Country: US (occurrence: US)
  Receive Date: 20120523
  Receipt Date: 20130109
  Transmission Date: 20140127
  Serious: Yes (Other)
  Sender: FDA-Public Use
  Company Number: US-GLAXOSMITHKLINE-Z0015523A

PATIENT
  Age: 57 Year
  Sex: Male
  Weight: 109 kg

DRUGS (10)
  1. PAZOPANIB [Suspect]
     Indication: RENAL CELL CARCINOMA
     Dosage: 600MG PER DAY
     Route: 048
     Dates: start: 20120413
  2. MULTIVITAMINS [Concomitant]
     Indication: SUPPLEMENTATION THERAPY
     Dosage: 2TAB PER DAY
     Route: 048
  3. TYLENOL [Concomitant]
     Indication: PAIN
     Dosage: 500MG AS REQUIRED
     Route: 048
  4. LOVENOX [Concomitant]
     Indication: DEEP VEIN THROMBOSIS
     Dosage: 100MG TWICE PER DAY
     Route: 058
     Dates: start: 20120508, end: 20120511
  5. WARFARIN [Concomitant]
     Indication: DEEP VEIN THROMBOSIS
     Dosage: 5MG PER DAY
     Route: 048
     Dates: start: 20120508, end: 20120510
  6. WARFARIN [Concomitant]
     Indication: DEEP VEIN THROMBOSIS
     Dosage: 7.5MG PER DAY
     Route: 048
     Dates: start: 20120511, end: 20120517
  7. WARFARIN [Concomitant]
     Indication: DEEP VEIN THROMBOSIS
     Dosage: 5MG FOUR TIMES PER WEEK
     Route: 048
     Dates: start: 20120518, end: 20120530
  8. WARFARIN [Concomitant]
     Indication: DEEP VEIN THROMBOSIS
     Dosage: 2.5MG THREE TIMES PER WEEK
     Route: 048
     Dates: start: 20120518, end: 20120530
  9. WARFARIN [Concomitant]
     Indication: DEEP VEIN THROMBOSIS
     Dosage: 5MG TWO TIMES PER WEEK
     Route: 048
     Dates: start: 20120531
  10. WARFARIN [Concomitant]
     Indication: DEEP VEIN THROMBOSIS
     Dosage: 2.5MG FIVE TIMES PER WEEK
     Route: 048
     Dates: start: 20120531

REACTIONS (1)
  - Polycythaemia [Recovered/Resolved]
